FAERS Safety Report 22226921 (Version 2)
Quarter: 2023Q2

REPORT INFORMATION
  Report Type: Spontaneous
  Country: GB (occurrence: GB)
  Receive Date: 20230419
  Receipt Date: 20230504
  Transmission Date: 20230721
  Serious: Yes (Other)
  Sender: FDA-Public Use
  Company Number: GB-China IPSEN SC-2023-08793

PATIENT
  Age: 32 Year
  Sex: Female

DRUGS (4)
  1. BOTULINUM TOXIN TYPE A [Suspect]
     Active Substance: BOTULINUM TOXIN TYPE A
     Indication: Skin cosmetic procedure
     Route: 065
  2. BOTULINUM TOXIN TYPE A [Suspect]
     Active Substance: BOTULINUM TOXIN TYPE A
     Indication: Off label use
  3. BOTULINUM TOXIN TYPE A [Suspect]
     Active Substance: BOTULINUM TOXIN TYPE A
     Indication: Off label use
  4. HYDROCORTISONE [Concomitant]
     Active Substance: HYDROCORTISONE
     Indication: Eczema

REACTIONS (10)
  - Loss of consciousness [Recovered/Resolved]
  - Injection site pain [Unknown]
  - Injection site swelling [Recovering/Resolving]
  - Nausea [Recovered/Resolved]
  - Brow ptosis [Recovered/Resolved]
  - Injection site hypoaesthesia [Unknown]
  - Injection site bruising [Unknown]
  - Headache [Unknown]
  - Off label use [Unknown]
  - Injection site swelling [Recovering/Resolving]

NARRATIVE: CASE EVENT DATE: 20230331
